FAERS Safety Report 6206275-0 (Version None)
Quarter: 2009Q2

REPORT INFORMATION
  Report Type: 
  Country: None (occurrence: None)
  Receive Date: 20090528
  Receipt Date: 20090518
  Transmission Date: 20091009
  Serious: Yes (Hospitalization)
  Sender: FDA-Public Use
  Company Number: JP-ROCHE-625672

PATIENT
  Sex: Male
  Weight: 44 kg

DRUGS (5)
  1. ROCEPHIN [Suspect]
     Indication: URINARY TRACT INFECTION
     Dosage: ROUTE: INTRAVENOUS (NOT OTHERWISE SPECIFIED), OTHER INDICATION: PYELONEPHRITIS
     Route: 042
     Dates: start: 20090219, end: 20090225
  2. ROCEPHIN [Suspect]
     Route: 042
     Dates: start: 20090302, end: 20090308
  3. AMLODIPINE [Concomitant]
     Route: 048
     Dates: start: 20090219
  4. GASPORT [Concomitant]
     Route: 048
     Dates: start: 20090219
  5. REMODELLIN [Concomitant]
     Route: 048
     Dates: start: 20090219

REACTIONS (1)
  - ALTERED STATE OF CONSCIOUSNESS [None]
